FAERS Safety Report 21472204 (Version 1)
Quarter: 2022Q4

REPORT INFORMATION
  Report Type: Spontaneous
  Country: FI (occurrence: FI)
  Receive Date: 20221018
  Receipt Date: 20221018
  Transmission Date: 20230113
  Serious: Yes (Disabling)
  Sender: FDA-Public Use
  Company Number: FI-ABBVIE-22K-055-4468213-00

PATIENT
  Age: 38 Year
  Sex: Male
  Weight: 97 kg

DRUGS (4)
  1. RINVOQ [Suspect]
     Active Substance: UPADACITINIB
     Indication: Rheumatoid arthritis
     Route: 048
     Dates: start: 202111
  2. METHOTREXATE [Concomitant]
     Active Substance: METHOTREXATE
     Indication: Rheumatoid arthritis
     Route: 058
  3. HYDROXYCHLOROQUINE SULFATE [Concomitant]
     Active Substance: HYDROXYCHLOROQUINE SULFATE
     Indication: Rheumatoid arthritis
     Route: 065
  4. MEDROL [Concomitant]
     Active Substance: METHYLPREDNISOLONE
     Indication: Product used for unknown indication
     Dosage: DOSAGE HAS BEEN CHANGING BETWEEN 4 AND 12 MILLIGRAMS
     Route: 065
     Dates: end: 202207

REACTIONS (4)
  - Nasal septum perforation [Recovered/Resolved with Sequelae]
  - Epistaxis [Recovered/Resolved]
  - Neutropenia [Unknown]
  - Alanine aminotransferase increased [Not Recovered/Not Resolved]

NARRATIVE: CASE EVENT DATE: 20220101
